FAERS Safety Report 12370371 (Version 1)
Quarter: 2016Q2

REPORT INFORMATION
  Report Type: Spontaneous
  Country: US (occurrence: None)
  Receive Date: 20160513
  Receipt Date: 20160513
  Transmission Date: 20160815
  Serious: Yes (Hospitalization, Disabling)
  Sender: FDA-Public Use
  Company Number: None

PATIENT
  Age: 46 Year
  Sex: Male
  Weight: 98 kg

DRUGS (1)
  1. IMBRUVICA [Suspect]
     Active Substance: IBRUTINIB
     Indication: MANTLE CELL LYMPHOMA
     Route: 048
     Dates: start: 20140617, end: 20160405

REACTIONS (4)
  - Cardiomyopathy [None]
  - Haemodialysis [None]
  - Acute kidney injury [None]
  - Atrial fibrillation [None]

NARRATIVE: CASE EVENT DATE: 20160504
